FAERS Safety Report 6479616-7 (Version None)
Quarter: 2009Q4

REPORT INFORMATION
  Report Type: 
  Country: None (occurrence: None)
  Receive Date: 20091208
  Receipt Date: 20091203
  Transmission Date: 20100525
  Serious: Yes (Other)
  Sender: FDA-Public Use
  Company Number: US-ALLERGAN-0916747US

PATIENT
  Age: 44 Year
  Sex: Female

DRUGS (2)
  1. LATISSE [Suspect]
     Indication: GROWTH OF EYELASHES
     Dosage: 1 GTT, QHS
     Route: 061
     Dates: start: 20091001, end: 20091101
  2. ARTIFICIAL TEARS [Concomitant]

REACTIONS (3)
  - DEPRESSION [None]
  - EYELIDS PRURITUS [None]
  - MADAROSIS [None]
